FAERS Safety Report 9259175 (Version 2)
Quarter: 2013Q2

REPORT INFORMATION
  Report Type: Spontaneous
  Country: BE (occurrence: BE)
  Receive Date: 20130426
  Receipt Date: 20130612
  Transmission Date: 20140414
  Serious: Yes (Disabling, Other)
  Sender: FDA-Public Use
  Company Number: BE-ASTRAZENECA-2013SE28031

PATIENT
  Age: 78 Year
  Sex: Female

DRUGS (5)
  1. VIMOVO [Suspect]
     Dosage: TWICE A DAY
     Route: 048
     Dates: start: 201111
  2. ASAFLOW [Concomitant]
     Indication: ANTICOAGULANT THERAPY
     Route: 048
     Dates: start: 200710
  3. SPIRONOLACTON EG [Concomitant]
     Route: 048
     Dates: start: 200203
  4. ZOLPIDEM EG [Concomitant]
     Indication: SLEEP DISORDER
     Route: 048
     Dates: start: 201207
  5. ZYRTEC [Concomitant]
     Indication: HYPERSENSITIVITY
     Route: 048
     Dates: start: 201210, end: 201210

REACTIONS (1)
  - Visual acuity reduced [Not Recovered/Not Resolved]
